FAERS Safety Report 8962693 (Version 3)
Quarter: 2014Q1

REPORT INFORMATION
  Report Type: Spontaneous
  Country: US (occurrence: US)
  Receive Date: 20121213
  Receipt Date: 20140205
  Transmission Date: 20141002
  Serious: No
  Sender: FDA-Public Use
  Company Number: US-PFIZER INC-2012311524

PATIENT
  Age: 65 Year
  Sex: Female

DRUGS (17)
  1. SUTENT [Suspect]
     Indication: RENAL NEOPLASM
     Dosage: 50 MG, (STRENGTH: 12.5 MG)
     Dates: start: 20121106
  2. ZOFRAN [Concomitant]
     Dosage: UNK
  3. PROMETHAZINE HYDROCHLORIDE [Concomitant]
     Dosage: UNK
  4. VITAMIN D3 [Concomitant]
     Dosage: UNK
  5. METOPROLOL SUCCINATE [Concomitant]
     Dosage: UNK
  6. TEMAZEPAM [Concomitant]
     Dosage: UNK
  7. IRON [Concomitant]
     Dosage: UNK
  8. RESTORIL [Concomitant]
     Dosage: UNK
  9. HEPARIN LOCK FLUSH [Concomitant]
     Dosage: UNK
  10. RENVELA [Concomitant]
     Dosage: UNK
  11. GRANISETRON HYDROCHLORIDE [Concomitant]
     Dosage: UNK
  12. PROZAC [Concomitant]
     Dosage: UNK
  13. EPOGEN [Concomitant]
     Dosage: UNK
  14. DIALYVITE 3000 [Concomitant]
     Dosage: UNK
  15. METOPROLOL TARTRATE [Concomitant]
     Dosage: UNK
  16. VITAMIN D [Concomitant]
     Dosage: UNK
  17. XANAX [Concomitant]
     Dosage: UNK

REACTIONS (6)
  - Nausea [Unknown]
  - Tachycardia [Unknown]
  - Vertigo [Unknown]
  - Burning sensation [Unknown]
  - Erythema [Unknown]
  - Anxiety [Unknown]
